FAERS Safety Report 4589380-4 (Version None)
Quarter: 2005Q1

REPORT INFORMATION
  Report Type: 
  Country: None (occurrence: None)
  Receive Date: 20050223
  Receipt Date: 20050214
  Transmission Date: 20050727
  Serious: Yes (Death, Hospitalization)
  Sender: FDA-Public Use
  Company Number: JP-BRISTOL-MYERS SQUIBB COMPANY-12860193

PATIENT
  Age: 74 Year
  Sex: Male

DRUGS (2)
  1. VEPESID [Suspect]
     Indication: PROSTATE CANCER
     Route: 048
     Dates: start: 20030627
  2. ESTRAMUSTINE PHOSPHATE SODIUM [Concomitant]
     Route: 048
     Dates: start: 20030516

REACTIONS (2)
  - PNEUMONIA [None]
  - WHITE BLOOD CELL COUNT DECREASED [None]
